FAERS Safety Report 4658911-8 (Version None)
Quarter: 2005Q2

REPORT INFORMATION
  Report Type: 
  Country: None (occurrence: None)
  Receive Date: 20050509
  Receipt Date: 20050426
  Transmission Date: 20051028
  Serious: Yes (Other)
  Sender: FDA-Public Use
  Company Number: 2005067121

PATIENT
  Age: 85 Year
  Sex: Female
  Weight: 54.4316 kg

DRUGS (2)
  1. CELEBREX [Suspect]
     Indication: ILL-DEFINED DISORDER
  2. ROLAIDS [Suspect]
     Indication: DYSPEPSIA
     Dates: start: 20050424, end: 20050425

REACTIONS (4)
  - DIARRHOEA [None]
  - DYSGEUSIA [None]
  - INSOMNIA [None]
  - THROAT IRRITATION [None]
